FAERS Safety Report 6270602-9 (Version None)
Quarter: 2009Q3

REPORT INFORMATION
  Report Type: 
  Country: None (occurrence: None)
  Receive Date: 20090716
  Receipt Date: 20090709
  Transmission Date: 20100115
  Serious: Yes (Other)
  Sender: FDA-Public Use
  Company Number: DE-ASTRAZENECA-2009PK01526

PATIENT
  Age: 789 Month
  Sex: Male
  Weight: 70 kg

DRUGS (6)
  1. NEXIUM [Suspect]
     Indication: REFLUX OESOPHAGITIS
     Route: 048
     Dates: start: 20040801
  2. FRAXIPARIN [Suspect]
     Dates: start: 20040801
  3. METOPROLOL SUCCINATE [Concomitant]
     Dates: start: 20040801
  4. ISCOVER [Concomitant]
     Dates: start: 20040801
  5. EXTIN N [Concomitant]
     Dosage: TWICE A DAY
     Dates: start: 20040801
  6. NAC DIAGNOSTIC REAGENT [Concomitant]
     Dates: start: 20040801

REACTIONS (2)
  - MULTIPLE FRACTURES [None]
  - OSTEOPOROSIS [None]
